FAERS Safety Report 5164614-6 (Version None)
Quarter: 2006Q4

REPORT INFORMATION
  Report Type: 
  Country: None (occurrence: None)
  Receive Date: 20061205
  Receipt Date: 20061130
  Transmission Date: 20070319
  Serious: Yes (Life-Threatening)
  Sender: FDA-Public Use
  Company Number: 2006CG01960

PATIENT
  Age: 42 Year
  Sex: Male

DRUGS (1)
  1. NAROPEINE [Suspect]
     Indication: LOCAL ANAESTHESIA
     Route: 058
     Dates: start: 20061116, end: 20061116

REACTIONS (6)
  - AGITATION [None]
  - CARDIAC ARREST [None]
  - CONVULSION [None]
  - HALLUCINATION [None]
  - MUSCLE RIGIDITY [None]
  - RESPIRATORY ARREST [None]
